FAERS Safety Report 16672575 (Version 3)
Quarter: 2019Q3

REPORT INFORMATION
  Report Type: Spontaneous
  Country: PL (occurrence: PL)
  Receive Date: 20190806
  Receipt Date: 20190815
  Transmission Date: 20191004
  Serious: Yes (Hospitalization, Other)
  Sender: FDA-Public Use
  Company Number: PL-PFIZER INC-2019332398

PATIENT
  Age: 14 Year
  Sex: Female

DRUGS (2)
  1. AMIODARONE HCL [Suspect]
     Active Substance: AMIODARONE HYDROCHLORIDE
     Indication: CARDIAC FAILURE
     Dosage: 100 MG, DAILY (FIVE TIMES A WEEK)
  2. AMIODARONE HCL [Suspect]
     Active Substance: AMIODARONE HYDROCHLORIDE
     Indication: SUPRAVENTRICULAR TACHYARRHYTHMIA
     Dosage: 50 MG, DAILY (FIVE TIMES A WEEK)

REACTIONS (2)
  - Toxic nodular goitre [Recovered/Resolved]
  - Hyperthyroidism [Recovered/Resolved]
